FAERS Safety Report 9541719 (Version 2)
Quarter: 2013Q4

REPORT INFORMATION
  Report Type: Spontaneous
  Country: JP (occurrence: JP)
  Receive Date: 20130923
  Receipt Date: 20131209
  Transmission Date: 20140711
  Serious: Yes (Other)
  Sender: FDA-Public Use
  Company Number: JP-ELI_LILLY_AND_COMPANY-JP201309004353

PATIENT
  Age: 7 Year
  Sex: Male
  Weight: 34 kg

DRUGS (2)
  1. STRATTERA [Suspect]
     Indication: ATTENTION DEFICIT/HYPERACTIVITY DISORDER
     Dosage: 15 MG, QD
     Route: 048
     Dates: start: 20120304, end: 20120724
  2. STRATTERA [Suspect]
     Dosage: 50 MG, QD
     Route: 048
     Dates: start: 20120725, end: 20130529

REACTIONS (1)
  - Astrocytoma [Unknown]
